FAERS Safety Report 9170085 (Version 1)
Quarter: 2013Q1

REPORT INFORMATION
  Report Type: Spontaneous
  Country: US (occurrence: None)
  Receive Date: 20130314
  Receipt Date: 20130314
  Transmission Date: 20140127
  Serious: Yes (Other)
  Sender: FDA-Public Use
  Company Number: None

PATIENT
  Age: 56 Year
  Sex: Female
  Weight: 65.77 kg

DRUGS (1)
  1. CRESTOR 20 MG ASTRAZENECA [Suspect]
     Indication: BLOOD CHOLESTEROL INCREASED
     Dosage: 1 PER DAY PO
     Route: 048
     Dates: start: 20130216, end: 20130316

REACTIONS (6)
  - Muscle spasms [None]
  - Pain in extremity [None]
  - Constipation [None]
  - Eructation [None]
  - Depressed mood [None]
  - Memory impairment [None]
